FAERS Safety Report 9252930 (Version 1)
Quarter: 2013Q2

REPORT INFORMATION
  Report Type: Spontaneous
  Country: GB (occurrence: GB)
  Receive Date: 20130424
  Receipt Date: 20130424
  Transmission Date: 20140414
  Serious: Yes (Other)
  Sender: FDA-Public Use
  Company Number: GB-ABBOTT-13X-167-1079949-00

PATIENT
  Age: 54 Year
  Sex: Female

DRUGS (2)
  1. EPILIM CHRONO [Suspect]
     Indication: EPILEPSY
     Route: 048
     Dates: start: 201209
  2. DONEPEZIL [Concomitant]
     Indication: PRODUCT USED FOR UNKNOWN INDICATION

REACTIONS (2)
  - Medication residue present [Unknown]
  - Convulsion [Unknown]
